FAERS Safety Report 7297186-0 (Version None)
Quarter: 2011Q1

REPORT INFORMATION
  Report Type: 
  Country: None (occurrence: None)
  Receive Date: 20110216
  Receipt Date: 20110216
  Transmission Date: 20110831
  Serious: Yes (Hospitalization, Other)
  Sender: FDA-Public Use
  Company Number: US-PFIZER INC-2011005002

PATIENT
  Sex: Female
  Weight: 72 kg

DRUGS (1)
  1. CHANTIX [Suspect]
     Indication: SMOKING CESSATION THERAPY
     Dosage: UNK
     Route: 048
     Dates: start: 20100101, end: 20100108

REACTIONS (8)
  - GASTROOESOPHAGEAL REFLUX DISEASE [None]
  - ABDOMINAL DISTENSION [None]
  - RASH [None]
  - DYSPHAGIA [None]
  - MALAISE [None]
  - DIARRHOEA [None]
  - VOMITING [None]
  - NAUSEA [None]
